FAERS Safety Report 25022946 (Version 1)
Quarter: 2025Q1

REPORT INFORMATION
  Report Type: Spontaneous
  Country: FR (occurrence: FR)
  Receive Date: 20250228
  Receipt Date: 20250228
  Transmission Date: 20250408
  Serious: Yes (Other)
  Sender: CHEPLAPHARM
  Company Number: None

PATIENT
  Age: 51 Year
  Sex: Male
  Weight: 87 kg

DRUGS (15)
  1. OLANZAPINE [Suspect]
     Active Substance: OLANZAPINE
     Indication: Mental disorder
     Route: 048
     Dates: start: 20170510, end: 20230112
  2. OLANZAPINE [Suspect]
     Active Substance: OLANZAPINE
     Indication: Mental disorder
     Dosage: DAILY DOSE: 20 MILLIGRAM
     Route: 048
     Dates: start: 20170512
  3. BROMAZEPAM [Concomitant]
     Active Substance: BROMAZEPAM
     Route: 048
     Dates: start: 20161215
  4. QUETIAPINE [Concomitant]
     Active Substance: QUETIAPINE
     Dosage: 0-0-1?DAILY DOSE: 1 DOSAGE FORM
     Dates: start: 20190711
  5. ZOLPIDEM [Concomitant]
     Active Substance: ZOLPIDEM TARTRATE
     Dosage: 0-0-1?DAILY DOSE: 1 DOSAGE FORM
     Route: 048
     Dates: start: 20161116
  6. ALPRAZOLAM [Concomitant]
     Active Substance: ALPRAZOLAM
     Route: 048
     Dates: start: 20161116
  7. LORMETAZEPAM [Concomitant]
     Active Substance: LORMETAZEPAM
     Dosage: PO: 0-0-1?DAILY DOSE: 1 DOSAGE FORM
     Route: 048
     Dates: start: 20170113
  8. PRAZEPAM [Concomitant]
     Active Substance: PRAZEPAM
     Dosage: 1-1-1?DAILY DOSE: 3 DOSAGE FORM
     Dates: start: 20170510
  9. DEPAKOTE [Concomitant]
     Active Substance: DIVALPROEX SODIUM
  10. ARIPIPRAZOLE [Concomitant]
     Active Substance: ARIPIPRAZOLE
     Dosage: 1/DAY?DAILY DOSE: 1 DOSAGE FORM
     Route: 048
     Dates: start: 20181213
  11. CYAMEMAZINE [Concomitant]
     Active Substance: CYAMEMAZINE
     Route: 048
     Dates: start: 20221213
  12. OXAZEPAM [Concomitant]
     Active Substance: OXAZEPAM
     Route: 048
     Dates: start: 20230116
  13. ETIFOXINE [Concomitant]
     Active Substance: ETIFOXINE
     Dosage: 2-2-2?DAILY DOSE: 6 DOSAGE FORM
     Dates: start: 20190829
  14. HYDROXYZINE HYDROCHLORIDE [Concomitant]
     Active Substance: HYDROXYZINE HYDROCHLORIDE
     Dosage: 25 MG 1-1-1?DAILY DOSE: 75 MILLIGRAM
     Dates: start: 20190829
  15. ZOPICLONE [Concomitant]
     Active Substance: ZOPICLONE
     Dosage: 7.5 MG PER DAY?DAILY DOSE: 7.5 MILLIGRAM
     Dates: start: 20220403

REACTIONS (3)
  - Apathy [Not Recovered/Not Resolved]
  - Bedridden [Not Recovered/Not Resolved]
  - Thinking abnormal [Recovered/Resolved]

NARRATIVE: CASE EVENT DATE: 20170701
